FAERS Safety Report 12140022 (Version 2)
Quarter: 2016Q3

REPORT INFORMATION
  Report Type: Spontaneous
  Country: GB (occurrence: GB)
  Receive Date: 20160303
  Receipt Date: 20160920
  Transmission Date: 20161109
  Serious: Yes (Life-Threatening)
  Sender: FDA-Public Use
  Company Number: GB-SUN PHARMACEUTICAL INDUSTRIES LTD-2016RR-112531

PATIENT

DRUGS (3)
  1. OLANZAPINE. [Suspect]
     Active Substance: OLANZAPINE
     Indication: BIPOLAR DISORDER
     Dosage: 12.5 MG, DAILY
     Route: 064
  2. PETHIDINE [Concomitant]
     Active Substance: MEPERIDINE
     Indication: ANAESTHESIA
     Route: 064
  3. EPIDURAL [Concomitant]
     Indication: ANAESTHESIA
     Route: 064

REACTIONS (5)
  - Neonatal respiratory depression [Recovered/Resolved]
  - Hypoxic-ischaemic encephalopathy [Unknown]
  - Respiratory arrest [Recovered/Resolved]
  - Convulsion neonatal [Recovered/Resolved]
  - Sepsis [Unknown]

NARRATIVE: CASE EVENT DATE: 20151231
